FAERS Safety Report 16416780 (Version 1)
Quarter: 2019Q2

REPORT INFORMATION
  Report Type: Spontaneous
  Country: HU (occurrence: HU)
  Receive Date: 20190611
  Receipt Date: 20190611
  Transmission Date: 20190711
  Serious: Yes (Other)
  Sender: FDA-Public Use
  Company Number: PHHY2019HU132697

PATIENT
  Age: 62 Year
  Sex: Female
  Weight: 82 kg

DRUGS (1)
  1. TACROLIMUS. [Suspect]
     Active Substance: TACROLIMUS
     Indication: RENAL TRANSPLANT
     Dosage: 2 MG, QD
     Route: 048
     Dates: start: 20170906, end: 20190531

REACTIONS (1)
  - Squamous cell carcinoma of the vulva [Recovering/Resolving]

NARRATIVE: CASE EVENT DATE: 20190531
